FAERS Safety Report 10100444 (Version 1)
Quarter: 2014Q2

REPORT INFORMATION
  Report Type: Report from Study
  Country: CA (occurrence: CA)
  Receive Date: 20140423
  Receipt Date: 20140423
  Transmission Date: 20141212
  Serious: Yes (Other)
  Sender: FDA-Public Use
  Company Number: CA-BRISTOL-MYERS SQUIBB COMPANY-20627899

PATIENT
  Age: 65 Year
  Sex: Female

DRUGS (1)
  1. ORENCIA [Suspect]
     Indication: RHEUMATOID ARTHRITIS
     Dosage: 1 DF= 750 UNITS NOS. FREQUENCY: 2 UNITS NOS
     Dates: end: 201006

REACTIONS (2)
  - Non-alcoholic steatohepatitis [Unknown]
  - Liver transplant [Unknown]
